FAERS Safety Report 7920296-9 (Version None)
Quarter: 2011Q4

REPORT INFORMATION
  Report Type: 
  Country: None (occurrence: None)
  Receive Date: 20111117
  Receipt Date: 20111109
  Transmission Date: 20120403
  Serious: Yes (Death)
  Sender: FDA-Public Use
  Company Number: US-BAXTER-2011BH035674

PATIENT
  Age: 70 Year
  Sex: Female

DRUGS (2)
  1. DIANEAL [Suspect]
     Indication: PERITONEAL DIALYSIS
     Route: 033
     Dates: start: 20110201, end: 20111106
  2. DIANEAL [Suspect]
     Indication: PERITONEAL DIALYSIS
     Route: 033
     Dates: start: 20110201, end: 20111106

REACTIONS (1)
  - DEATH [None]
